FAERS Safety Report 11504224 (Version 4)
Quarter: 2018Q4

REPORT INFORMATION
  Report Type: Spontaneous
  Country: US (occurrence: US)
  Receive Date: 20150914
  Receipt Date: 20181026
  Transmission Date: 20190204
  Serious: Yes (Hospitalization, Other)
  Sender: FDA-Public Use
  Company Number: US-DSJP-DSU-2015-118048

PATIENT

DRUGS (1)
  1. BENICAR [Suspect]
     Active Substance: OLMESARTAN MEDOXOMIL
     Indication: HYPERTENSION
     Dosage: 40 MG, QD
     Route: 048
     Dates: start: 20071101, end: 201406

REACTIONS (17)
  - Anal incontinence [Unknown]
  - Acute kidney injury [Unknown]
  - Coeliac disease [Unknown]
  - Hepatic steatosis [Not Recovered/Not Resolved]
  - Presyncope [Not Recovered/Not Resolved]
  - Irritable bowel syndrome [Unknown]
  - Lymphoid tissue hyperplasia [Unknown]
  - Dyspepsia [Not Recovered/Not Resolved]
  - Cardiac disorder [Unknown]
  - Sprue-like enteropathy [Recovering/Resolving]
  - Pancreatic atrophy [Unknown]
  - Lipoma [Not Recovered/Not Resolved]
  - Large intestine polyp [Not Recovered/Not Resolved]
  - Pancreatic failure [Unknown]
  - Inflammatory bowel disease [Recovering/Resolving]
  - Diverticulum intestinal [Not Recovered/Not Resolved]
  - Intestinal mass [Unknown]

NARRATIVE: CASE EVENT DATE: 2008
